FAERS Safety Report 7645766-2 (Version None)
Quarter: 2011Q3

REPORT INFORMATION
  Report Type: 
  Country: None (occurrence: None)
  Receive Date: 20110729
  Receipt Date: 20110615
  Transmission Date: 20111222
  Serious: Yes (Hospitalization, Other)
  Sender: FDA-Public Use
  Company Number: US-PFIZER INC-2009193986

PATIENT
  Sex: Male

DRUGS (2)
  1. LYRICA [Suspect]
     Indication: SLEEP DISORDER
  2. LYRICA [Suspect]
     Indication: NEURALGIA
     Dosage: UNK
     Dates: start: 20080615, end: 20080801

REACTIONS (7)
  - PNEUMONIA [None]
  - DEVICE BREAKAGE [None]
  - BURNS THIRD DEGREE [None]
  - DRUG INEFFECTIVE FOR UNAPPROVED INDICATION [None]
  - FALL [None]
  - GAIT DISTURBANCE [None]
  - BALANCE DISORDER [None]
